FAERS Safety Report 16425785 (Version 1)
Quarter: 2019Q2

REPORT INFORMATION
  Report Type: Spontaneous
  Country: US (occurrence: US)
  Receive Date: 20190613
  Receipt Date: 20190613
  Transmission Date: 20190711
  Serious: No
  Sender: FDA-Public Use
  Company Number: US-ASTRAZENECA-2019SE74441

PATIENT
  Age: 69 Year
  Sex: Female

DRUGS (1)
  1. SYMBICORT [Suspect]
     Active Substance: BUDESONIDE\FORMOTEROL FUMARATE DIHYDRATE
     Dosage: ONE TO TWO INHALATIONS TWICE DAILY
     Route: 055

REACTIONS (5)
  - Asthma [Unknown]
  - Nervousness [Unknown]
  - Viral infection [Unknown]
  - Off label use [Unknown]
  - Nausea [Unknown]
